FAERS Safety Report 24292094 (Version 1)
Quarter: 2024Q3

REPORT INFORMATION
  Report Type: Spontaneous
  Country: US (occurrence: None)
  Receive Date: 20240906
  Receipt Date: 20240906
  Transmission Date: 20241016
  Serious: No
  Sender: DOMPE FARMACEUTICI
  Company Number: US-FARMAPROD-202308-202306-1716

PATIENT
  Age: 80 Year
  Sex: Female

DRUGS (14)
  1. OXERVATE [Suspect]
     Active Substance: CENEGERMIN-BKBJ
     Indication: Neurotrophic keratopathy
     Route: 047
     Dates: start: 20230531
  2. OXERVATE [Suspect]
     Active Substance: CENEGERMIN-BKBJ
     Route: 047
     Dates: start: 20240218
  3. OXERVATE [Suspect]
     Active Substance: CENEGERMIN-BKBJ
  4. PYRIDOXINE [Concomitant]
     Active Substance: PYRIDOXINE
  5. ZINC-15 [Concomitant]
  6. GINKGO [Concomitant]
     Active Substance: GINKGO
  7. PROBIOTICS NOS [Concomitant]
     Active Substance: PROBIOTICS NOS
     Dosage: 10 BILLION CELL
  8. VITAMIN D3 [Concomitant]
     Active Substance: CHOLECALCIFEROL
  9. CALCIUM [Concomitant]
     Active Substance: CALCIUM
     Dosage: 500 (1250)
  10. REFRESH OPTIVE [Concomitant]
     Active Substance: CARBOXYMETHYLCELLULOSE SODIUM\GLYCERIN
     Dosage: 1 %-0.9 % DROPS GEL
  11. XELPROS [Concomitant]
     Active Substance: LATANOPROST
     Dosage: DROPS EMULSION
  12. VITAMINS [Concomitant]
     Active Substance: VITAMINS
  13. IVIZIA [Concomitant]
     Active Substance: POVIDONE
  14. TIMOLOL-DORZOLAMIDE [Concomitant]
     Dosage: 2 %-0.5 %

REACTIONS (4)
  - Eye irritation [Unknown]
  - Foreign body sensation in eyes [Unknown]
  - Rhinorrhoea [Unknown]
  - Eye pain [Unknown]

NARRATIVE: CASE EVENT DATE: 20240201
